FAERS Safety Report 11339676 (Version 1)
Quarter: 2015Q3

REPORT INFORMATION
  Report Type: Spontaneous
  Country: None (occurrence: None)
  Receive Date: 20150804
  Receipt Date: 20150804
  Transmission Date: 20151125
  Serious: Yes (Disabling)
  Sender: FDA-Public Use
  Company Number: None

PATIENT
  Age: 51 Year
  Sex: Female
  Weight: 57.61 kg

DRUGS (10)
  1. PATADAY EYEDROPS [Concomitant]
  2. PROBIOTICS [Concomitant]
     Active Substance: PROBIOTICS NOS
  3. VITAMIN D,C,B COMPLEX [Concomitant]
  4. MULTI [Concomitant]
  5. DMAE [Concomitant]
  6. QUERCETIN [Concomitant]
     Active Substance: QUERCETIN
  7. LEVAQUIN [Suspect]
     Active Substance: LEVOFLOXACIN
     Indication: SINUSITIS
     Dosage: 1 ONCE DAILY TAKEN BY MOUTH
     Route: 048
     Dates: start: 20150301, end: 20150331
  8. HORMONE REPLACEMENT TROCHES FOR ESTROGEN AND PROGESTERONE [Concomitant]
  9. FISH OIL [Concomitant]
     Active Substance: FISH OIL
  10. DIGESTIVE ENZYMES [Concomitant]
     Active Substance: UNSPECIFIED INGREDIENT

REACTIONS (11)
  - Tendon pain [None]
  - Confusional state [None]
  - Anxiety [None]
  - Fatigue [None]
  - Mood swings [None]
  - Headache [None]
  - Irritability [None]
  - Arthralgia [None]
  - Cognitive disorder [None]
  - Restless legs syndrome [None]
  - Asthenia [None]

NARRATIVE: CASE EVENT DATE: 20150301
